FAERS Safety Report 16807289 (Version 1)
Quarter: 2019Q3

REPORT INFORMATION
  Report Type: Spontaneous
  Country: US (occurrence: US)
  Receive Date: 20190913
  Receipt Date: 20190913
  Transmission Date: 20191005
  Serious: No
  Sender: FDA-Public Use
  Company Number: US-TEVA-2019-US-1107171

PATIENT
  Age: 78 Year
  Sex: Female
  Weight: 58.97 kg

DRUGS (1)
  1. PREGABALIN TEVA (GENERIC LYRICA) [Suspect]
     Active Substance: PREGABALIN
     Indication: FIBROMYALGIA
     Dosage: 225 MILLIGRAM DAILY;
     Route: 048

REACTIONS (2)
  - Drug ineffective [Unknown]
  - Product dispensing error [Unknown]

NARRATIVE: CASE EVENT DATE: 20190829
